FAERS Safety Report 12265251 (Version 3)
Quarter: 2016Q2

REPORT INFORMATION
  Report Type: Spontaneous
  Country: US (occurrence: US)
  Receive Date: 20160413
  Receipt Date: 20160426
  Transmission Date: 20160815
  Serious: Yes (Other)
  Sender: FDA-Public Use
  Company Number: US-MDT-ADR-2016-00671

PATIENT
  Age: 23 Year
  Sex: Male

DRUGS (2)
  1. BACLOFEN. [Suspect]
     Active Substance: BACLOFEN
     Dosage: 942 MCG/DAY
     Route: 037
  2. BACLOFEN. [Suspect]
     Active Substance: BACLOFEN
     Dosage: 80-90 MG /DAY
     Route: 048

REACTIONS (4)
  - Muscle spasticity [Recovering/Resolving]
  - No therapeutic response [Recovering/Resolving]
  - Muscle spasms [Recovering/Resolving]
  - Hypotonia [Recovering/Resolving]
